FAERS Safety Report 9159592 (Version 1)
Quarter: 2013Q1

REPORT INFORMATION
  Report Type: Spontaneous
  Country: JP (occurrence: JP)
  Receive Date: 20130313
  Receipt Date: 20130313
  Transmission Date: 20140127
  Serious: Yes (Other)
  Sender: FDA-Public Use
  Company Number: JP-GENZYME-THYM-1003698

PATIENT
  Age: 5 Year
  Sex: Male

DRUGS (6)
  1. THYMOGLOBULINE [Suspect]
     Indication: BONE MARROW CONDITIONING REGIMEN
     Dosage: 5 MG/KG, UNK
     Route: 065
  2. FLUDARA [Suspect]
     Indication: BONE MARROW CONDITIONING REGIMEN
     Dosage: 100 MG/M2, UNK
     Route: 065
  3. CICLOSPORIN [Suspect]
     Indication: BONE MARROW CONDITIONING REGIMEN
     Dosage: 3000 MG/M2, UNK
     Route: 065
  4. UNSPECIFIED [Suspect]
     Indication: BONE MARROW CONDITIONING REGIMEN
     Dosage: 3 GY, UNK
     Route: 065
  5. METHOTREXATE [Concomitant]
     Indication: PROPHYLAXIS AGAINST GRAFT VERSUS HOST DISEASE
     Dosage: UNK
     Route: 065
  6. TACROLIMUS [Concomitant]
     Indication: PROPHYLAXIS AGAINST GRAFT VERSUS HOST DISEASE
     Dosage: UNK
     Route: 065

REACTIONS (3)
  - Engraftment syndrome [Unknown]
  - Graft versus host disease [Unknown]
  - Sepsis [Unknown]
